FAERS Safety Report 20626006 (Version 5)
Quarter: 2023Q1

REPORT INFORMATION
  Report Type: Report from Study
  Country: CA (occurrence: CA)
  Receive Date: 20220323
  Receipt Date: 20230119
  Transmission Date: 20230417
  Serious: Yes (Hospitalization)
  Sender: FDA-Public Use
  Company Number: CA-JNJFOC-20211252877

PATIENT
  Age: 38 Year
  Sex: Male
  Weight: 75 kg

DRUGS (2)
  1. REMICADE [Suspect]
     Active Substance: INFLIXIMAB
     Indication: Crohn^s disease
     Dosage: ON 05-AUG-2021 PATIENT RECEIVED REMICADE INFUSION.?ON 16-FEB-2022, PATIENT ARRIVED AT CLINIC FOR INF
     Route: 042
     Dates: start: 20210805
  2. REMICADE [Suspect]
     Active Substance: INFLIXIMAB
     Dosage: THE PATIENT ARRIVED FOR INFUSION ON 11-MAY-2022
     Route: 042

REACTIONS (3)
  - Fistula [Recovered/Resolved]
  - Intestinal resection [Recovered/Resolved]
  - Intestinal obstruction [Recovered/Resolved]

NARRATIVE: CASE EVENT DATE: 20220301
